FAERS Safety Report 9999154 (Version 2)
Quarter: 2014Q1

REPORT INFORMATION
  Report Type: Spontaneous
  Country: JP (occurrence: JP)
  Receive Date: 20140312
  Receipt Date: 20140327
  Transmission Date: 20141002
  Serious: Yes (Hospitalization)
  Sender: FDA-Public Use
  Company Number: JP-JNJFOC-20140305203

PATIENT
  Age: 60 Year
  Sex: Female

DRUGS (1)
  1. TRAMCET [Suspect]
     Indication: PAIN
     Route: 048

REACTIONS (2)
  - Drug-induced liver injury [Unknown]
  - Autoimmune hepatitis [Unknown]
